FAERS Safety Report 6237683-X (Version None)
Quarter: 2009Q2

REPORT INFORMATION
  Report Type: 
  Country: None (occurrence: None)
  Receive Date: 20090617
  Receipt Date: 20090608
  Transmission Date: 20091009
  Serious: Yes (Other)
  Sender: FDA-Public Use
  Company Number: ZOL20090022

PATIENT
  Age: 60 Year
  Sex: Male

DRUGS (8)
  1. ZOLPIDEM [Suspect]
     Indication: SLEEP DISORDER
     Dosage: 10 MG, DAILY, ORAL
     Route: 048
     Dates: end: 20090605
  2. METFORMIN [Suspect]
     Indication: DIABETES MELLITUS
     Dosage: DAILY, ORAL
     Route: 048
  3. CHANTIX [Suspect]
     Indication: SMOKING CESSATION THERAPY
     Dosage: DAILY, ORAL
     Route: 048
  4. ADVICOR [Suspect]
     Indication: BLOOD CHOLESTEROL INCREASED
     Dosage: DAILY, ORAL
     Route: 048
  5. COUMADIN [Suspect]
     Indication: CARDIOVASCULAR EVENT PROPHYLAXIS
     Dosage: DAILY, ORAL
     Route: 048
  6. FLOMAX [Suspect]
     Indication: BENIGN PROSTATIC HYPERPLASIA
     Dosage: DAILY, ORAL
     Route: 048
  7. UNSPECIFIED INHALER [Suspect]
     Indication: CHRONIC OBSTRUCTIVE PULMONARY DISEASE
     Dosage: AS NEEDED, INHALATION
     Route: 055
  8. BENICAR [Suspect]
     Indication: CARDIOVASCULAR EVENT PROPHYLAXIS
     Dosage: DAILY, ORAL
     Route: 048
     Dates: start: 20090501

REACTIONS (4)
  - DRUG EFFECT DECREASED [None]
  - HAEMORRHAGIC STROKE [None]
  - HYPERTENSIVE ENCEPHALOPATHY [None]
  - SLEEP DISORDER [None]
